FAERS Safety Report 25974003 (Version 1)
Quarter: 2025Q4

REPORT INFORMATION
  Report Type: Spontaneous
  Country: US (occurrence: US)
  Receive Date: 20251029
  Receipt Date: 20251029
  Transmission Date: 20260117
  Serious: Yes (Other)
  Sender: BIOCON
  Company Number: US-BIOCON-BCN-2025-000315

PATIENT
  Sex: Female

DRUGS (3)
  1. TACROLIMUS [Suspect]
     Active Substance: TACROLIMUS
     Indication: Product used for unknown indication
  2. JAKAFI [Suspect]
     Active Substance: RUXOLITINIB
     Indication: Acute graft versus host disease
     Route: 048
     Dates: start: 202507
  3. JAKAFI [Suspect]
     Active Substance: RUXOLITINIB
     Indication: Acute myeloid leukaemia

REACTIONS (5)
  - Hallucination [Unknown]
  - Sapovirus infection [Recovered/Resolved]
  - Respiratory syncytial virus infection [Recovering/Resolving]
  - Rhinovirus infection [Unknown]
  - Diarrhoea [Not Recovered/Not Resolved]
